FAERS Safety Report 8303481 (Version 4)
Quarter: 2013Q4

REPORT INFORMATION
  Report Type: Spontaneous
  Country: JP (occurrence: JP)
  Receive Date: 20111220
  Receipt Date: 20131111
  Transmission Date: 20140711
  Serious: Yes (Other)
  Sender: FDA-Public Use
  Company Number: PHHY2011JP105391

PATIENT
  Age: 46 Year
  Sex: Female

DRUGS (2)
  1. CICLOSPORIN [Suspect]
     Indication: APLASTIC ANAEMIA
     Dosage: 5 MG/KG, PER DAY
     Route: 042
     Dates: start: 20110420, end: 201106
  2. THYMOGLOBULINE [Concomitant]
     Indication: APLASTIC ANAEMIA
     Dosage: 3.5 MG/KG, UNK
     Dates: start: 20110420

REACTIONS (13)
  - Gastritis erosive [Unknown]
  - Pancytopenia [Not Recovered/Not Resolved]
  - Gastric ulcer [Unknown]
  - Cytomegalovirus infection [Recovering/Resolving]
  - Epstein-Barr virus infection [Recovered/Resolved]
  - Herpes virus infection [Recovered/Resolved]
  - Pyrexia [Recovered/Resolved]
  - Papule [Recovered/Resolved]
  - Rash [Recovered/Resolved]
  - Post transplant lymphoproliferative disorder [Recovering/Resolving]
  - Varicella virus test positive [Unknown]
  - White blood cell count decreased [Recovering/Resolving]
  - Hepatic function abnormal [Recovering/Resolving]
